FAERS Safety Report 13242964 (Version 1)
Quarter: 2017Q1

REPORT INFORMATION
  Report Type: Spontaneous
  Country: US (occurrence: US)
  Receive Date: 20170216
  Receipt Date: 20170216
  Transmission Date: 20170428
  Serious: No
  Sender: FDA-Public Use
  Company Number: None

PATIENT
  Age: 38 Year
  Sex: Female
  Weight: 67.5 kg

DRUGS (1)
  1. SPIRONOLACTONE. [Suspect]
     Active Substance: SPIRONOLACTONE
     Indication: ACNE
     Dosage: ?          QUANTITY:30 TABLET(S);?
     Route: 048
     Dates: start: 20170106, end: 20170210

REACTIONS (8)
  - Breast swelling [None]
  - Headache [None]
  - Oedema [None]
  - Dizziness [None]
  - Nipple pain [None]
  - Weight increased [None]
  - Hair growth abnormal [None]
  - Drug ineffective [None]

NARRATIVE: CASE EVENT DATE: 20170206
